FAERS Safety Report 6932535-1 (Version None)
Quarter: 2010Q3

REPORT INFORMATION
  Report Type: 
  Country: None (occurrence: None)
  Receive Date: 20100817
  Receipt Date: 20100811
  Transmission Date: 20110219
  Serious: Yes (Death)
  Sender: FDA-Public Use
  Company Number: 2010US003244

PATIENT
  Age: 56 Year
  Sex: Female
  Weight: 48 kg

DRUGS (7)
  1. PROGRAF [Suspect]
     Indication: RENAL TRANSPLANT
     Dosage: 2 MG, BID, ORAL
     Route: 048
     Dates: start: 20040318
  2. PRILOSEC (OMEPRAZOLE) [Concomitant]
  3. NEXIUM IV [Concomitant]
  4. COUMADIN [Concomitant]
  5. PREDNISONE [Concomitant]
  6. DIOVAN [Concomitant]
  7. MULTIVITAMIN [Concomitant]

REACTIONS (1)
  - DEATH [None]
